FAERS Safety Report 9639133 (Version 2)
Quarter: 2013Q4

REPORT INFORMATION
  Report Type: Spontaneous
  Country: GB (occurrence: GB)
  Receive Date: 20131022
  Receipt Date: 20131106
  Transmission Date: 20140711
  Serious: Yes (Life-Threatening, Hospitalization, Disabling, Other)
  Sender: FDA-Public Use
  Company Number: GB-TAKEDA-2013TJP001946

PATIENT
  Sex: 0

DRUGS (6)
  1. LANSOPRAZOLE [Suspect]
     Indication: GASTRITIS
     Dosage: 30 MG, QD
     Route: 048
     Dates: start: 2010
  2. ATORVASTATIN [Suspect]
     Indication: HYPERCHOLESTEROLAEMIA
     Dosage: 40 MG, QD, AT NIGHT
     Route: 048
     Dates: start: 20120701, end: 20130928
  3. FOLIC ACID [Concomitant]
  4. TIOTROPIUM [Concomitant]
  5. PARACETAMOL [Concomitant]
  6. BETAHISTINE [Concomitant]

REACTIONS (4)
  - Thrombotic thrombocytopenic purpura [Recovering/Resolving]
  - Renal failure acute [Recovering/Resolving]
  - Confusional state [Recovering/Resolving]
  - Neurological symptom [Recovering/Resolving]
